FAERS Safety Report 6331768-5 (Version None)
Quarter: 2009Q3

REPORT INFORMATION
  Report Type: 
  Country: None (occurrence: None)
  Receive Date: 20090826
  Receipt Date: 20090812
  Transmission Date: 20100115
  Serious: Yes (Hospitalization, Other)
  Sender: FDA-Public Use
  Company Number: 430020K09USA

PATIENT
  Age: 45 Year
  Sex: Female
  Weight: 52 kg

DRUGS (3)
  1. NOVANTRONE [Suspect]
     Indication: MULTIPLE SCLEROSIS
     Dates: start: 20020101, end: 20020101
  2. KEPPRA [Concomitant]
  3. LEVOTHYROXINE (LEVOTHYROXINE /00068001/) [Concomitant]

REACTIONS (2)
  - BREAST CANCER IN SITU [None]
  - GRAFT INFECTION [None]
